FAERS Safety Report 16944933 (Version 1)
Quarter: 2019Q4

REPORT INFORMATION
  Report Type: Spontaneous
  Country: JP (occurrence: JP)
  Receive Date: 20191022
  Receipt Date: 20191022
  Transmission Date: 20200122
  Serious: Yes (Hospitalization)
  Sender: FDA-Public Use
  Company Number: JP-AMGEN-JPNSP2019174031

PATIENT
  Age: 76 Year
  Sex: Male

DRUGS (5)
  1. KYPROLIS [Suspect]
     Active Substance: CARFILZOMIB
     Dosage: 56 MILLIGRAM/SQ. METER
     Route: 041
     Dates: start: 2019, end: 2019
  2. KYPROLIS [Suspect]
     Active Substance: CARFILZOMIB
     Dosage: 27 MILLIGRAM/SQ. METER
     Route: 041
     Dates: start: 2019
  3. KYPROLIS [Suspect]
     Active Substance: CARFILZOMIB
     Dosage: 20 MILLIGRAM/SQ. METER
     Route: 041
     Dates: start: 2019, end: 2019
  4. DEXAMETHASONE. [Concomitant]
     Active Substance: DEXAMETHASONE
     Indication: PLASMA CELL MYELOMA
     Dosage: UNK
     Route: 065
  5. KYPROLIS [Suspect]
     Active Substance: CARFILZOMIB
     Indication: PLASMA CELL MYELOMA
     Dosage: 20 MILLIGRAM/SQ. METER
     Route: 041
     Dates: start: 2019, end: 2019

REACTIONS (2)
  - Troponin I increased [Unknown]
  - Troponin I increased [Recovered/Resolved]

NARRATIVE: CASE EVENT DATE: 2019
